FAERS Safety Report 11948211 (Version 2)
Quarter: 2016Q2

REPORT INFORMATION
  Report Type: Spontaneous
  Country: DE (occurrence: DE)
  Receive Date: 20160125
  Receipt Date: 20160428
  Transmission Date: 20160815
  Serious: Yes (Other)
  Sender: FDA-Public Use
  Company Number: PHHY2016DE008058

PATIENT
  Sex: Female
  Weight: 50 kg

DRUGS (3)
  1. ERGENYL CHRONO [Concomitant]
     Active Substance: VALPROIC ACID
     Indication: EPILEPSY
     Dosage: 300 MG, BID
     Route: 048
  2. TIMONIL [Concomitant]
     Active Substance: CARBAMAZEPINE
     Indication: EPILEPSY
     Dosage: 300 MG, QD
     Route: 048
  3. GILENYA [Suspect]
     Active Substance: FINGOLIMOD HYDROCHLORIDE
     Indication: MULTIPLE SCLEROSIS
     Dosage: 0.5 MG, QD
     Route: 048
     Dates: start: 20130304

REACTIONS (7)
  - Retinal exudates [Recovering/Resolving]
  - Rhinitis [Recovering/Resolving]
  - Retinal artery occlusion [Recovering/Resolving]
  - Retinal haemorrhage [Unknown]
  - Visual acuity reduced [Recovering/Resolving]
  - Cough [Unknown]
  - Uveitis [Recovering/Resolving]

NARRATIVE: CASE EVENT DATE: 201512
